FAERS Safety Report 4493096-2 (Version None)
Quarter: 2004Q4

REPORT INFORMATION
  Report Type: 
  Country: None (occurrence: None)
  Receive Date: 20041104
  Receipt Date: 20041025
  Transmission Date: 20050328
  Serious: Yes (Other)
  Sender: FDA-Public Use
  Company Number: US-GLAXOSMITHKLINE-A0532357A

PATIENT
  Age: 77 Year
  Sex: Female

DRUGS (1)
  1. RELAFEN [Suspect]
     Route: 065

REACTIONS (3)
  - DEAFNESS [None]
  - GINGIVAL ABSCESS [None]
  - TREMOR [None]
